FAERS Safety Report 8292378-6 (Version None)
Quarter: 2012Q2

REPORT INFORMATION
  Report Type: 
  Country: None (occurrence: None)
  Receive Date: 20120417
  Receipt Date: 20120412
  Transmission Date: 20120825
  Serious: Yes (Hospitalization)
  Sender: FDA-Public Use
  Company Number: CHPA2012US008122

PATIENT
  Age: 69 Year
  Sex: Female

DRUGS (4)
  1. PREVACID 24 HR [Suspect]
     Indication: OESOPHAGITIS
     Dosage: 30 MG, BID
     Route: 048
  2. PREVACID 24 HR [Suspect]
     Dosage: 15 MG, QD
     Route: 048
     Dates: start: 20090101
  3. NEXIUM [Concomitant]
  4. PRILOSEC [Concomitant]

REACTIONS (5)
  - BLOOD PRESSURE FLUCTUATION [None]
  - HALLUCINATION [None]
  - OFF LABEL USE [None]
  - OVERDOSE [None]
  - INCORRECT DRUG ADMINISTRATION DURATION [None]
